FAERS Safety Report 4648497-6 (Version None)
Quarter: 2005Q2

REPORT INFORMATION
  Report Type: 
  Country: None (occurrence: None)
  Receive Date: 20050427
  Receipt Date: 20040524
  Transmission Date: 20051028
  Serious: Yes (Life-Threatening)
  Sender: FDA-Public Use
  Company Number: ZONI001435

PATIENT
  Age: 9 Month
  Sex: Female

DRUGS (7)
  1. EXCEGRAN (ZONISAMIDE) [Suspect]
     Indication: EPILEPSY
     Dosage: 60 MG; ORAL
     Route: 048
     Dates: start: 20031203, end: 20040309
  2. DEPAKENE [Suspect]
     Indication: EPILEPSY
     Dosage: 199.8 MG
     Dates: start: 20031203, end: 20040309
  3. CORTROSYN Z [Concomitant]
  4. CLARITHROMYCIN [Concomitant]
  5. ENTERONON (LACTOBACILLUS ACIDOPHILUS) [Concomitant]
  6. MUCODYNE (CARBOCISTEINE) [Concomitant]
  7. BISOLVON (BROMHEXINE HYDROCHLORIDE) [Concomitant]

REACTIONS (4)
  - GENERAL SYMPTOM [None]
  - INTERSTITIAL LUNG DISEASE [None]
  - STRIDOR [None]
  - VIRUS SEROLOGY TEST POSITIVE [None]
